FAERS Safety Report 13376292 (Version 1)
Quarter: 2017Q1

REPORT INFORMATION
  Report Type: Spontaneous
  Country: HU (occurrence: HU)
  Receive Date: 20170328
  Receipt Date: 20170328
  Transmission Date: 20170429
  Serious: Yes (Death)
  Sender: FDA-Public Use
  Company Number: HU-UNITED THERAPEUTICS-UNT-2017-004111

PATIENT

DRUGS (1)
  1. REMODULIN [Suspect]
     Active Substance: TREPROSTINIL
     Indication: PRODUCT USED FOR UNKNOWN INDICATION
     Route: 058

REACTIONS (1)
  - Death [Fatal]
